FAERS Safety Report 22625254 (Version 3)
Quarter: 2023Q4

REPORT INFORMATION
  Report Type: Spontaneous
  Country: US (occurrence: US)
  Receive Date: 20230621
  Receipt Date: 20231222
  Transmission Date: 20240110
  Serious: No
  Sender: FDA-Public Use
  Company Number: US-PFIZER INC-PV202300106274

PATIENT
  Age: 75 Year
  Sex: Female
  Weight: 57.143 kg

DRUGS (7)
  1. IBRANCE [Suspect]
     Active Substance: PALBOCICLIB
     Indication: Breast cancer stage IV
     Dosage: ONCE DAILY FOR 3 WEEKS, OFF FOR 1 WEEK
  2. LETROZOLE [Concomitant]
     Active Substance: LETROZOLE
     Indication: Breast cancer stage IV
     Dosage: 25 UNK, DAILY, STARTED 3 YEARS BEFORE
  3. ELIQUIS [Concomitant]
     Active Substance: APIXABAN
     Indication: Blood disorder
     Dosage: STARTED 3 YEARS BEFORE
  4. METOPROLOL [Concomitant]
     Active Substance: METOPROLOL
     Indication: Blood pressure abnormal
     Dosage: STARTED 7 YEARS BEFORE
  5. ZOLPIDEM [Concomitant]
     Active Substance: ZOLPIDEM TARTRATE
     Dosage: 1 SPLEEP
  6. OMEPRAZOLE [Concomitant]
     Active Substance: OMEPRAZOLE
     Dosage: STOMACH
  7. VANCOMYCIN HYDROCHLORIDE [Concomitant]
     Active Substance: VANCOMYCIN HYDROCHLORIDE
     Dosage: UNK

REACTIONS (4)
  - Spinal stenosis [Unknown]
  - Hernia [Unknown]
  - Ulcer [Unknown]
  - Diarrhoea [Unknown]
